FAERS Safety Report 8008988 (Version 2)
Quarter: 2012Q4

REPORT INFORMATION
  Report Type: 
  Country: US (occurrence: US)
  Receive Date: 20110624
  Receipt Date: 20120904
  Transmission Date: 20130627
  Serious: Yes (Hospitalization)
  Sender: FDA-Public Use
  Company Number: US-US-EMD SERONO, INC.-7066266

PATIENT
  Age: 45 Year
  Sex: Female
  Weight: 72 kg

DRUGS (4)
  1. REBIF [Suspect]
     Indication: MULTIPLE SCLEROSIS
     Route: 058
     Dates: start: 20100426, end: 201011
  2. REBIF [Suspect]
     Route: 058
     Dates: start: 201011
  3. REBIF [Suspect]
     Route: 058
     Dates: start: 20110101
  4. TYLENOL PM [Concomitant]
     Indication: PREMEDICATION

REACTIONS (1)
  - Uterine leiomyoma [Recovered/Resolved with Sequelae]
